FAERS Safety Report 12199209 (Version 2)
Quarter: 2016Q3

REPORT INFORMATION
  Report Type: Spontaneous
  Country: US (occurrence: US)
  Receive Date: 20160322
  Receipt Date: 20160822
  Transmission Date: 20161109
  Serious: Yes (Congenital Anomaly, Other)
  Sender: FDA-Public Use
  Company Number: PHEH2016US006767

PATIENT
  Sex: Female

DRUGS (2)
  1. ZOFRAN [Suspect]
     Active Substance: ONDANSETRON HYDROCHLORIDE
     Indication: FOETAL EXPOSURE DURING PREGNANCY
     Dosage: UNK
     Route: 064
  2. ONDANSETRON [Suspect]
     Active Substance: ONDANSETRON
     Indication: FOETAL EXPOSURE DURING PREGNANCY
     Dosage: UNK
     Route: 064

REACTIONS (14)
  - Cognitive disorder [Unknown]
  - Anxiety [Unknown]
  - Congenital anomaly [Unknown]
  - Growth retardation [Unknown]
  - Mental disorder [Unknown]
  - Injury [Unknown]
  - Confusional state [Unknown]
  - Asthenia [Unknown]
  - Nervous system disorder [Unknown]
  - Disorientation [Unknown]
  - Developmental hip dysplasia [Unknown]
  - Foetal exposure during pregnancy [Unknown]
  - Pain [Unknown]
  - Anhedonia [Unknown]
